FAERS Safety Report 8221795-5 (Version None)
Quarter: 2012Q1

REPORT INFORMATION
  Report Type: 
  Country: None (occurrence: None)
  Receive Date: 20120320
  Receipt Date: 20120320
  Transmission Date: 20120608
  Serious: Yes (Other)
  Sender: FDA-Public Use
  Company Number: None

PATIENT
  Age: 44 Year
  Sex: Female
  Weight: 72.574 kg

DRUGS (1)
  1. EFFEXOR [Suspect]
     Indication: STRESS
     Route: 048
     Dates: start: 20080801, end: 20120323

REACTIONS (5)
  - ANHEDONIA [None]
  - SUICIDAL IDEATION [None]
  - WITHDRAWAL SYNDROME [None]
  - LOSS OF LIBIDO [None]
  - ASOCIAL BEHAVIOUR [None]
